FAERS Safety Report 24145715 (Version 1)
Quarter: 2024Q3

REPORT INFORMATION
  Report Type: Spontaneous
  Country: JP (occurrence: JP)
  Receive Date: 20240729
  Receipt Date: 20240729
  Transmission Date: 20241017
  Serious: Yes (Death)
  Sender: LABORATOIRES SERB
  Company Number: JP-SERB S.A.S.-2159700

PATIENT
  Age: 80 Year
  Sex: Female

DRUGS (4)
  1. VORAXAZE [Suspect]
     Active Substance: GLUCARPIDASE
     Indication: Toxicity to various agents
     Route: 042
     Dates: start: 20240119, end: 20240119
  2. intrathecal Ara-C (Methotrexate;Cytarabine) for Diffuse large B-cell l [Concomitant]
  3. R-M (mini) CHOP (Cyclophosphamide;D oxorubicin;Vincristine;Prednisolon [Concomitant]
  4. HD-MTX (Methotrexate;Rituximab) [Concomitant]

REACTIONS (1)
  - Disease progression [Fatal]
